FAERS Safety Report 16572906 (Version 3)
Quarter: 2020Q3

REPORT INFORMATION
  Report Type: Spontaneous
  Country: FR (occurrence: FR)
  Receive Date: 20190715
  Receipt Date: 20200826
  Transmission Date: 20201102
  Serious: Yes (Other)
  Sender: FDA-Public Use
  Company Number: FR-PFIZER INC-2019299842

PATIENT
  Age: 83 Year
  Sex: Male
  Weight: 73 kg

DRUGS (4)
  1. ELIQUIS [Concomitant]
     Active Substance: APIXABAN
  2. FUROSEMIDE. [Concomitant]
     Active Substance: FUROSEMIDE
  3. VYNDAQEL [Suspect]
     Active Substance: TAFAMIDIS MEGLUMINE
     Indication: CARDIAC AMYLOIDOSIS
     Dosage: 20 MG, DAILY
     Dates: end: 20190709
  4. VYNDAQEL [Suspect]
     Active Substance: TAFAMIDIS MEGLUMINE
     Dosage: 20 MG, 1X/DAY
     Dates: start: 202008

REACTIONS (2)
  - Cardiac failure chronic [Unknown]
  - Disease progression [Unknown]
